FAERS Safety Report 17559329 (Version 1)
Quarter: 2020Q1

REPORT INFORMATION
  Report Type: Report from Study
  Country: CO (occurrence: CO)
  Receive Date: 20200319
  Receipt Date: 20200319
  Transmission Date: 20200409
  Serious: Yes (Hospitalization, Other)
  Sender: FDA-Public Use
  Company Number: CO-ROCHE-2474441

PATIENT
  Sex: Female

DRUGS (1)
  1. CELLCEPT [Suspect]
     Active Substance: MYCOPHENOLATE MOFETIL\MYCOPHENOLATE MOFETIL HYDROCHLORIDE
     Indication: TRANSPLANT
     Route: 065

REACTIONS (9)
  - Chills [Unknown]
  - Pyrexia [Unknown]
  - Vein disorder [Unknown]
  - Hepatic infection [Unknown]
  - Portal vein occlusion [Unknown]
  - Pain [Unknown]
  - Medication error [Unknown]
  - Pruritus [Unknown]
  - Bile duct obstruction [Unknown]
